FAERS Safety Report 8125037-0 (Version None)
Quarter: 2012Q1

REPORT INFORMATION
  Report Type: 
  Country: None (occurrence: None)
  Receive Date: 20120209
  Receipt Date: 20120202
  Transmission Date: 20120608
  Serious: Yes (Other)
  Sender: FDA-Public Use
  Company Number: RU-ROCHE-1036476

PATIENT
  Sex: Female

DRUGS (2)
  1. RIBAVIRIN [Concomitant]
     Indication: HEPATITIS C
     Route: 048
     Dates: start: 20110504
  2. PEGASYS [Suspect]
     Indication: HEPATITIS C
     Route: 058
     Dates: start: 20110504

REACTIONS (12)
  - LEUKOPENIA [None]
  - RASH [None]
  - TONGUE ERUPTION [None]
  - BODY TEMPERATURE DECREASED [None]
  - RHINITIS [None]
  - SKIN PAPILLOMA [None]
  - ORAL MUCOSAL ERUPTION [None]
  - NEUTROPHIL COUNT DECREASED [None]
  - THROMBOCYTOPENIA [None]
  - EYE PRURITUS [None]
  - OROPHARYNGEAL PAIN [None]
  - HAEMOGLOBIN DECREASED [None]
